FAERS Safety Report 18936288 (Version 2)
Quarter: 2021Q1

REPORT INFORMATION
  Report Type: Spontaneous
  Country: US (occurrence: US)
  Receive Date: 20210224
  Receipt Date: 20210308
  Transmission Date: 20210420
  Serious: Yes (Other)
  Sender: FDA-Public Use
  Company Number: US-PFIZER INC-2019-05886

PATIENT
  Age: 71 Year
  Sex: Female

DRUGS (8)
  1. MEKTOVI [Suspect]
     Active Substance: BINIMETINIB
     Dosage: 45 MG, 2X/DAY
     Route: 048
     Dates: start: 20190607, end: 20190616
  2. BRAFTOVI [Suspect]
     Active Substance: ENCORAFENIB
     Dosage: 150 MG, DAILY
     Route: 048
     Dates: end: 20201104
  3. BRAFTOVI [Suspect]
     Active Substance: ENCORAFENIB
     Indication: METASTATIC NEOPLASM
     Dosage: 225. MG, 1X/DAY
     Route: 048
     Dates: start: 20190606
  4. BRAFTOVI [Suspect]
     Active Substance: ENCORAFENIB
     Dosage: 75 MG
  5. MEKTOVI [Suspect]
     Active Substance: BINIMETINIB
     Indication: METASTATIC NEOPLASM
     Dosage: 30 MG, 2X/DAY
     Route: 048
     Dates: start: 20190606
  6. BRAFTOVI [Suspect]
     Active Substance: ENCORAFENIB
     Dosage: 450 MG, 1X/DAY
     Route: 048
     Dates: start: 20190607, end: 20190616
  7. MEKTOVI [Suspect]
     Active Substance: BINIMETINIB
     Dosage: 15 MG, 2X/DAY Q (EVERY) 12 HRS^)
     Route: 048
     Dates: end: 20201104
  8. MEKTOVI [Suspect]
     Active Substance: BINIMETINIB
     Dosage: 30 MG

REACTIONS (14)
  - Hypoaesthesia [Unknown]
  - Joint stiffness [Unknown]
  - Rash [Unknown]
  - Pyrexia [Unknown]
  - Balance disorder [Unknown]
  - Tremor [Unknown]
  - Alopecia [Unknown]
  - Neoplasm progression [Unknown]
  - Haematochezia [Unknown]
  - Skin discolouration [Unknown]
  - Muscle tightness [Unknown]
  - Hypersensitivity [Unknown]
  - Constipation [Unknown]
  - Off label use [Unknown]
